FAERS Safety Report 9217922 (Version 1)
Quarter: 2013Q2

REPORT INFORMATION
  Report Type: Spontaneous
  Country: US (occurrence: US)
  Receive Date: 20130408
  Receipt Date: 20130408
  Transmission Date: 20140414
  Serious: Yes (Other)
  Sender: FDA-Public Use
  Company Number: US-PFIZER INC-2013109871

PATIENT
  Age: 88 Year
  Sex: Female
  Weight: 62.13 kg

DRUGS (5)
  1. NEURONTIN [Suspect]
     Indication: POST HERPETIC NEURALGIA
     Dosage: 100 MG, 2X/DAY
     Dates: start: 2012, end: 2012
  2. NEURONTIN [Suspect]
     Dosage: 300 MG, UNK
     Dates: start: 2013, end: 201304
  3. FUROSEMIDE [Concomitant]
     Dosage: 40 MG, AS NEEDED
  4. GLYBURIDE [Concomitant]
     Dosage: 1.25 MG, AS NEEDED
  5. CLONIDINE [Concomitant]
     Dosage: UNK

REACTIONS (18)
  - Cerebral haemorrhage [Recovering/Resolving]
  - Brain oedema [Recovering/Resolving]
  - Blood pressure increased [Recovering/Resolving]
  - Limb discomfort [Recovering/Resolving]
  - Vision blurred [Not Recovered/Not Resolved]
  - Dysarthria [Recovering/Resolving]
  - Pulmonary oedema [Recovering/Resolving]
  - Muscle twitching [Recovering/Resolving]
  - Diarrhoea [Recovering/Resolving]
  - Dry mouth [Recovering/Resolving]
  - Speech disorder [Recovering/Resolving]
  - Dyspnoea [Recovering/Resolving]
  - Eye disorder [Recovering/Resolving]
  - Gait disturbance [Recovering/Resolving]
  - Somnolence [Recovering/Resolving]
  - Nausea [Recovering/Resolving]
  - Dizziness [Recovering/Resolving]
  - Pain [Recovering/Resolving]
